FAERS Safety Report 5322064-3 (Version None)
Quarter: 2007Q2

REPORT INFORMATION
  Report Type: 
  Country: None (occurrence: None)
  Receive Date: 20070511
  Receipt Date: 20070502
  Transmission Date: 20071010
  Serious: Yes (Hospitalization)
  Sender: FDA-Public Use
  Company Number: NSADSS2001019718

PATIENT
  Sex: Female
  Weight: 59 kg

DRUGS (10)
  1. REMICADE [Suspect]
     Route: 041
     Dates: start: 20010612
  2. REMICADE [Suspect]
     Indication: CROHN'S DISEASE
     Route: 041
     Dates: start: 20010612
  3. OMEPRAZOLE [Concomitant]
     Indication: PROPHYLAXIS
  4. CLAVERSAL [Concomitant]
     Indication: CROHN'S DISEASE
     Route: 048
  5. PREDNISOLONE [Concomitant]
  6. PREDNISOLONE [Concomitant]
     Indication: ENTERITIS
  7. CORTISONE ACETATE [Concomitant]
     Route: 065
  8. IRON [Concomitant]
     Route: 065
  9. FERRO SANOL [Concomitant]
     Indication: ANAEMIA
     Route: 048
  10. IMUREK [Concomitant]
     Indication: CROHN'S DISEASE
     Route: 048

REACTIONS (3)
  - BACK PAIN [None]
  - GUILLAIN-BARRE SYNDROME [None]
  - MYOCARDIAL ISCHAEMIA [None]
